FAERS Safety Report 4511233-8 (Version None)
Quarter: 2004Q4

REPORT INFORMATION
  Report Type: 
  Country: None (occurrence: None)
  Receive Date: 20041129
  Receipt Date: 20041116
  Transmission Date: 20050328
  Serious: Yes (Hospitalization)
  Sender: FDA-Public Use
  Company Number: GB-JNJFOC-20041100162

PATIENT
  Sex: Female

DRUGS (14)
  1. REMICADE [Suspect]
     Indication: RHEUMATOID ARTHRITIS
     Route: 042
  2. DICLOFENAC [Concomitant]
  3. METHOTREXATE [Concomitant]
  4. SULPHASALZINE [Concomitant]
  5. FOLIC ACID [Concomitant]
  6. LACIDIPINE [Concomitant]
  7. LISINOPRIL [Concomitant]
  8. DOXAZOSIN [Concomitant]
  9. ATENOLOL [Concomitant]
  10. FRUSEMIDE [Concomitant]
  11. KLIOFEM [Concomitant]
  12. KLIOFEM [Concomitant]
  13. CO-PROXAMOL [Concomitant]
  14. CO-PROXAMOL [Concomitant]

REACTIONS (4)
  - ATRIAL FIBRILLATION [None]
  - CARDIAC FAILURE CONGESTIVE [None]
  - PLEURAL EFFUSION [None]
  - PNEUMONIA [None]
